FAERS Safety Report 6307907-9 (Version None)
Quarter: 2009Q3

REPORT INFORMATION
  Report Type: 
  Country: None (occurrence: None)
  Receive Date: 20090812
  Receipt Date: 20090812
  Transmission Date: 20100115
  Serious: Yes (Life-Threatening, Other)
  Sender: FDA-Public Use
  Company Number: None

PATIENT
  Age: 31 Year
  Sex: Female
  Weight: 47.6277 kg

DRUGS (4)
  1. PAROXETINE -GENERIC FR PAXIL- 20MG [Suspect]
     Indication: ANXIETY
     Dosage: 1/2 TAB 1 PO
     Route: 048
     Dates: start: 20090810, end: 20090810
  2. PAROXETINE -GENERIC FR PAXIL- 20MG [Suspect]
     Indication: OBSESSIVE-COMPULSIVE DISORDER
     Dosage: 1/2 TAB 1 PO
     Route: 048
     Dates: start: 20090810, end: 20090810
  3. PAROXETINE -GENERIC FR PAXIL- 20MG [Suspect]
     Indication: POST-TRAUMATIC STRESS DISORDER
     Dosage: 1/2 TAB 1 PO
     Route: 048
     Dates: start: 20090810, end: 20090810
  4. CLONAZAPAM -GENERIC FOR KLONAPIN- [Concomitant]

REACTIONS (18)
  - ANXIETY [None]
  - DIARRHOEA [None]
  - DIZZINESS [None]
  - DRY MOUTH [None]
  - DYSPNOEA [None]
  - FEAR [None]
  - FEELING OF BODY TEMPERATURE CHANGE [None]
  - FLASHBACK [None]
  - FLATULENCE [None]
  - HEART RATE IRREGULAR [None]
  - INITIAL INSOMNIA [None]
  - MANIA [None]
  - MUSCLE TWITCHING [None]
  - NAUSEA [None]
  - OBSESSIVE THOUGHTS [None]
  - PARAESTHESIA [None]
  - RESTLESSNESS [None]
  - SUICIDAL IDEATION [None]
